FAERS Safety Report 15765321 (Version 1)
Quarter: 2018Q4

REPORT INFORMATION
  Report Type: Spontaneous
  Country: SE (occurrence: SE)
  Receive Date: 20181227
  Receipt Date: 20181227
  Transmission Date: 20190205
  Serious: Yes (Hospitalization)
  Sender: FDA-Public Use
  Company Number: SE-SA-2018SA389990

PATIENT
  Age: 55 Year
  Sex: Male

DRUGS (6)
  1. ZOCORD [Concomitant]
     Active Substance: SIMVASTATIN
     Route: 048
  2. SELOKEN [METOPROLOL TARTRATE] [Concomitant]
     Route: 048
  3. ANTABUS [Concomitant]
     Active Substance: DISULFIRAM
     Route: 048
  4. PLENDIL [Concomitant]
     Active Substance: FELODIPINE
     Route: 048
  5. THERALEN [Concomitant]
     Active Substance: TRIMEPRAZINE
  6. STILNOCT [Suspect]
     Active Substance: ZOLPIDEM TARTRATE
     Dosage: 200 MG
     Route: 048
     Dates: start: 200301, end: 200311

REACTIONS (3)
  - Drug abuse [Unknown]
  - Drug tolerance increased [Unknown]
  - Dependence [Unknown]

NARRATIVE: CASE EVENT DATE: 2003
